FAERS Safety Report 6213952-4 (Version None)
Quarter: 2009Q2

REPORT INFORMATION
  Report Type: 
  Country: None (occurrence: None)
  Receive Date: 20090604
  Receipt Date: 20090525
  Transmission Date: 20091009
  Serious: Yes (Hospitalization)
  Sender: FDA-Public Use
  Company Number: JP-JNJFOC-20090402896

PATIENT
  Sex: Female
  Weight: 54 kg

DRUGS (15)
  1. REMICADE [Suspect]
     Dosage: 10TH  INFUSION
     Route: 042
  2. REMICADE [Suspect]
     Dosage: 8 INFUSIONS ON UNSPECIFIED DATES
     Route: 042
  3. REMICADE [Suspect]
     Indication: RHEUMATOID ARTHRITIS
     Dosage: INFUSION 1-9 ON UNSPECIFIED DATES
     Route: 042
  4. METHOTREXATE [Suspect]
     Route: 048
  5. METHOTREXATE [Suspect]
     Route: 048
  6. METHOTREXATE [Suspect]
     Indication: RHEUMATOID ARTHRITIS
     Route: 048
  7. PREDNISOLONE [Suspect]
     Indication: RHEUMATOID ARTHRITIS
     Route: 048
  8. MUCOSTA [Concomitant]
     Indication: GASTROINTESTINAL DISORDER THERAPY
     Route: 048
  9. MECOBALAMIN [Concomitant]
     Indication: NEUROPATHY PERIPHERAL
     Route: 048
  10. ISCOTIN [Concomitant]
     Indication: ANTIBIOTIC PROPHYLAXIS
     Route: 048
  11. BONALON [Concomitant]
     Indication: OSTEOPOROSIS
     Route: 048
  12. SELTOUCH [Concomitant]
     Indication: RHEUMATOID ARTHRITIS
  13. INTEBAN [Concomitant]
     Indication: RHEUMATOID ARTHRITIS
  14. NEUROVITAN [Concomitant]
     Indication: NEUROPATHY PERIPHERAL
     Dosage: DOSE: 3 TAB
  15. JUVELA N [Concomitant]
     Indication: NEUROPATHY PERIPHERAL
     Route: 048

REACTIONS (2)
  - ARTHRALGIA [None]
  - DIFFUSE LARGE B-CELL LYMPHOMA [None]
